FAERS Safety Report 5137727-2 (Version None)
Quarter: 2006Q4

REPORT INFORMATION
  Report Type: 
  Country: None (occurrence: None)
  Receive Date: 20061030
  Receipt Date: 20051223
  Transmission Date: 20070319
  Serious: No
  Sender: FDA-Public Use
  Company Number: US-GLAXOSMITHKLINE-A0586921A

PATIENT
  Age: 74 Year
  Sex: Female

DRUGS (11)
  1. ADVAIR HFA [Suspect]
     Indication: ASTHMA
     Dates: start: 20051209
  2. PRIMATENE [Concomitant]
  3. AMOXICILLIN + CLAVULANATE K [Concomitant]
  4. NORVASC [Concomitant]
  5. ZYRTEC [Concomitant]
  6. LIPITOR [Concomitant]
  7. OXYBUTYNIN [Concomitant]
  8. SINGULAIR [Concomitant]
  9. ALBUTEROL [Concomitant]
  10. TRIAMTERENE [Concomitant]
  11. LECITHIN [Concomitant]

REACTIONS (4)
  - DRY EYE [None]
  - NERVOUSNESS [None]
  - PALPITATIONS [None]
  - WHEEZING [None]
